FAERS Safety Report 24641658 (Version 2)
Quarter: 2024Q4

REPORT INFORMATION
  Report Type: Spontaneous
  Country: US (occurrence: US)
  Receive Date: 20241120
  Receipt Date: 20241209
  Transmission Date: 20250115
  Serious: No
  Sender: BLUEPRINT MEDICINES
  Company Number: US-Blueprint Medicines Corporation-5387

PATIENT
  Age: 78 Year
  Sex: Male

DRUGS (3)
  1. AYVAKIT [Suspect]
     Active Substance: AVAPRITINIB
     Indication: Gastrointestinal stromal tumour
     Route: 065
     Dates: start: 20241112
  2. AYVAKIT [Suspect]
     Active Substance: AVAPRITINIB
     Dosage: 100MG ON MONDAY, WEDNESDAY, AND FRIDAY; 200MG ON SUNDAY, TUESDAY, THURSDAY, AND SATURDAY
     Route: 065
     Dates: start: 20241112
  3. AYVAKIT [Suspect]
     Active Substance: AVAPRITINIB
     Dosage: 100MG ON MONDAY, WEDNESDAY, AND FRIDAY; 200MG ON SUNDAY, TUESDAY, THURSDAY, AND SATURDAY
     Route: 065
     Dates: start: 20241112

REACTIONS (5)
  - Decreased appetite [Not Recovered/Not Resolved]
  - Asthenia [Not Recovered/Not Resolved]
  - Fatigue [Not Recovered/Not Resolved]
  - Photophobia [Not Recovered/Not Resolved]
  - Nausea [Not Recovered/Not Resolved]
